FAERS Safety Report 14402623 (Version 1)
Quarter: 2018Q1

REPORT INFORMATION
  Report Type: Spontaneous
  Country: US (occurrence: US)
  Receive Date: 20180116
  Receipt Date: 20180116
  Transmission Date: 20180509
  Serious: Yes (Other)
  Sender: FDA-Public Use
  Company Number: None

PATIENT
  Age: 38 Year
  Sex: Female
  Weight: 79.2 kg

DRUGS (6)
  1. MINOXIDOL HAIR REGROWTH TREATMENT [Suspect]
     Active Substance: MINOXIDIL
     Indication: ALOPECIA
     Dosage: ?          OTHER STRENGTH:5 PERCENT;?
     Route: 061
     Dates: start: 20180106, end: 20180108
  2. VITAMIN C [Concomitant]
     Active Substance: ASCORBIC ACID
  3. BENADRYL [Concomitant]
     Active Substance: DIPHENHYDRAMINE HYDROCHLORIDE
  4. VITAMIN D [Concomitant]
     Active Substance: CHOLECALCIFEROL
  5. WATER PILLS [Concomitant]
     Active Substance: UNSPECIFIED INGREDIENT
  6. MULTI VITAMIN [Concomitant]
     Active Substance: VITAMINS

REACTIONS (14)
  - Weight increased [None]
  - Dyspnoea [None]
  - Heart rate abnormal [None]
  - Hypotension [None]
  - Joint swelling [None]
  - Fluid retention [None]
  - Migraine [None]
  - Fatigue [None]
  - Peripheral swelling [None]
  - Dizziness [None]
  - Palpitations [None]
  - Hypersensitivity [None]
  - Swelling face [None]
  - Erythema [None]

NARRATIVE: CASE EVENT DATE: 20180106
